FAERS Safety Report 16056795 (Version 3)
Quarter: 2019Q2

REPORT INFORMATION
  Report Type: Report from Study
  Country: IN (occurrence: IN)
  Receive Date: 20190311
  Receipt Date: 20190428
  Transmission Date: 20190711
  Serious: Yes (Other)
  Sender: FDA-Public Use
  Company Number: PHHY2019IN051428

PATIENT
  Age: 38 Year
  Sex: Female

DRUGS (6)
  1. DOLO [Concomitant]
     Indication: PAIN
     Dosage: UNK UNK, PRN
     Route: 065
  2. SCAPHO [Suspect]
     Active Substance: SECUKINUMAB
     Dosage: 150 MG, QMO (5TH DOSE)
     Route: 058
     Dates: start: 20190202
  3. SCAPHO [Suspect]
     Active Substance: SECUKINUMAB
     Indication: PSORIATIC ARTHROPATHY
     Dosage: 150 MG, QMO (1ST DOSE)
     Route: 058
     Dates: start: 20181210
  4. SCAPHO [Suspect]
     Active Substance: SECUKINUMAB
     Dosage: 150 MG, QMO
     Route: 058
     Dates: start: 20190102
  5. SCAPHO [Suspect]
     Active Substance: SECUKINUMAB
     Dosage: 150 MG, QMO
     Route: 058
     Dates: start: 20190423
  6. ETOSHINE [Concomitant]
     Indication: PAIN
     Dosage: UNK UNK, PRN
     Route: 065

REACTIONS (4)
  - Colitis [Not Recovered/Not Resolved]
  - Abdominal pain [Recovered/Resolved]
  - Inflammatory bowel disease [Not Recovered/Not Resolved]
  - Dysentery [Recovered/Resolved]

NARRATIVE: CASE EVENT DATE: 20190306
